FAERS Safety Report 5782387-0 (Version None)
Quarter: 2008Q2

REPORT INFORMATION
  Report Type: 
  Country: None (occurrence: None)
  Receive Date: 20080623
  Receipt Date: 20071114
  Transmission Date: 20081010
  Serious: No
  Sender: FDA-Public Use
  Company Number: US-AMGEN-US252626

PATIENT
  Sex: Male

DRUGS (6)
  1. ARANESP [Suspect]
     Indication: ANAEMIA
     Route: 058
     Dates: start: 20050101
  2. LANTUS [Concomitant]
     Route: 065
  3. GLYBURIDE [Concomitant]
     Route: 065
  4. LIPITOR [Concomitant]
     Route: 065
  5. ALTACE [Concomitant]
     Route: 065
  6. IMDUR [Concomitant]
     Route: 065

REACTIONS (1)
  - THERAPEUTIC RESPONSE DECREASED [None]
